FAERS Safety Report 6737660-6 (Version None)
Quarter: 2010Q2

REPORT INFORMATION
  Report Type: 
  Country: None (occurrence: None)
  Receive Date: 20100521
  Receipt Date: 20100521
  Transmission Date: 20101027
  Serious: Yes (Hospitalization, Other)
  Sender: FDA-Public Use
  Company Number: None

PATIENT
  Age: 62 Year
  Sex: Male
  Weight: 79.3795 kg

DRUGS (1)
  1. LIPITOR [Suspect]
     Indication: BLOOD CHOLESTEROL INCREASED
     Dosage: 1TABLET ONCE A DAY PO
     Route: 048
     Dates: start: 20010915, end: 20100420

REACTIONS (6)
  - AMNESIA [None]
  - BALANCE DISORDER [None]
  - DEPRESSION [None]
  - MUSCLE INJURY [None]
  - NEUROPATHY PERIPHERAL [None]
  - SURGERY [None]
